FAERS Safety Report 6920284-5 (Version None)
Quarter: 2010Q3

REPORT INFORMATION
  Report Type: 
  Country: None (occurrence: None)
  Receive Date: 20100806
  Receipt Date: 20100802
  Transmission Date: 20110219
  Serious: Yes (Other)
  Sender: FDA-Public Use
  Company Number: 2010SP027213

PATIENT
  Age: 41 Year
  Sex: Female

DRUGS (5)
  1. SAPHRIS [Suspect]
     Indication: PRODUCT USED FOR UNKNOWN INDICATION
     Dosage: 5 MG; 2.5 MG
     Dates: start: 20100323, end: 20100327
  2. SAPHRIS [Suspect]
     Indication: PRODUCT USED FOR UNKNOWN INDICATION
     Dosage: 5 MG; 2.5 MG
     Dates: start: 20100406, end: 20100420
  3. ESKALITH CR (CON.) [Concomitant]
  4. DEPAKOTE ER (CON. [Concomitant]
  5. KLONOPIN (CON.) [Concomitant]

REACTIONS (3)
  - GENERALISED OEDEMA [None]
  - RASH [None]
  - TREMOR [None]
